FAERS Safety Report 25319430 (Version 1)
Quarter: 2025Q2

REPORT INFORMATION
  Report Type: Spontaneous
  Country: AT (occurrence: AT)
  Receive Date: 20250515
  Receipt Date: 20250515
  Transmission Date: 20250716
  Serious: Yes (Other)
  Sender: AMGEN
  Company Number: AT-AMGEN-AUTSP2025091760

PATIENT
  Age: 34 Year
  Sex: Male

DRUGS (3)
  1. VECTIBIX [Suspect]
     Active Substance: PANITUMUMAB
     Indication: Rectal cancer metastatic
     Dosage: UNK UNK, Q2WK
     Route: 065
     Dates: start: 202401
  2. SOTORASIB [Suspect]
     Active Substance: SOTORASIB
     Indication: Rectal cancer metastatic
     Dosage: 960 MILLIGRAM, QD 1 TIMES DAILY
     Route: 065
     Dates: start: 20240124
  3. SOTORASIB [Suspect]
     Active Substance: SOTORASIB
     Route: 065
     Dates: start: 20250220

REACTIONS (7)
  - Metastases to abdominal wall [Unknown]
  - Drug-induced liver injury [Unknown]
  - Metastases to liver [Unknown]
  - Paronychia [Unknown]
  - Diarrhoea [Recovering/Resolving]
  - Dermatitis acneiform [Unknown]
  - Nausea [Unknown]

NARRATIVE: CASE EVENT DATE: 20240101
